FAERS Safety Report 8220575-4 (Version None)
Quarter: 2012Q1

REPORT INFORMATION
  Report Type: 
  Country: None (occurrence: None)
  Receive Date: 20120313
  Receipt Date: 20120229
  Transmission Date: 20120608
  Serious: Yes (Congenital Anomaly)
  Sender: FDA-Public Use
  Company Number: A0968870A

PATIENT
  Sex: Male

DRUGS (2)
  1. ACYCLOVIR [Suspect]
     Indication: CONGENITAL HERPES SIMPLEX INFECTION
     Dosage: INTRAVENOUS
     Route: 042
  2. VALACYCLOVIR HYDROCHLORIDE [Suspect]
     Indication: GENITAL HERPES
     Dosage: 1 GRAM(S) / TWICE PER DAY / TRANSPLACEN
     Route: 064

REACTIONS (6)
  - KERATITIS HERPETIC [None]
  - DRUG RESISTANCE [None]
  - CONGENITAL HERPES SIMPLEX INFECTION [None]
  - MATERNAL DRUGS AFFECTING FOETUS [None]
  - PLEOCYTOSIS [None]
  - EYE INFECTION BACTERIAL [None]
